FAERS Safety Report 7677772-6 (Version None)
Quarter: 2011Q3

REPORT INFORMATION
  Report Type: 
  Country: None (occurrence: None)
  Receive Date: 20110811
  Receipt Date: 20110802
  Transmission Date: 20111222
  Serious: Yes (Disabling)
  Sender: FDA-Public Use
  Company Number: CA-SANOFI-AVENTIS-2011SA049635

PATIENT
  Sex: Male

DRUGS (2)
  1. PLAVIX [Suspect]
     Route: 065
  2. GLICLAZIDE [Concomitant]

REACTIONS (1)
  - GAIT DISTURBANCE [None]
